FAERS Safety Report 9454341 (Version 2)
Quarter: 2013Q3

REPORT INFORMATION
  Report Type: Spontaneous
  Country: DE (occurrence: DE)
  Receive Date: 20130812
  Receipt Date: 20130821
  Transmission Date: 20140515
  Serious: Yes (Hospitalization, Other)
  Sender: FDA-Public Use
  Company Number: PHHY2013DE083837

PATIENT
  Sex: Male

DRUGS (2)
  1. TRILEPTAL [Suspect]
     Indication: CONVULSION
     Dosage: 300 MG, TID (THREE TABLETS)
     Route: 064
     Dates: start: 20081004
  2. OXCARBAZEPINE [Suspect]
     Indication: EPILEPSY
     Route: 064

REACTIONS (5)
  - Neonatal respiratory distress syndrome [Recovering/Resolving]
  - Bradycardia neonatal [Recovering/Resolving]
  - Apnoea neonatal [Recovering/Resolving]
  - Feeding disorder neonatal [Recovering/Resolving]
  - Foetal exposure during pregnancy [Recovering/Resolving]
